FAERS Safety Report 9068250 (Version 3)
Quarter: 2014Q1

REPORT INFORMATION
  Report Type: Spontaneous
  Country: GB (occurrence: GB)
  Receive Date: 20130206
  Receipt Date: 20140129
  Transmission Date: 20141002
  Serious: Yes (Other)
  Sender: FDA-Public Use
  Company Number: GB-WATSON-2013-01831

PATIENT
  Sex: Female

DRUGS (6)
  1. METOPROLOL (UNKNOWN) [Suspect]
     Indication: HYPERTENSION
     Dosage: UNK
     Route: 048
  2. METOPROLOL (UNKNOWN) [Suspect]
     Dosage: UNK
     Route: 042
  3. DIAMORPHINE [Concomitant]
     Indication: PAIN
     Dosage: 15 MG, DAILY
     Route: 058
  4. CYCLIZINE [Concomitant]
     Indication: PRODUCT USED FOR UNKNOWN INDICATION
     Dosage: 150 MG, QHS
     Route: 058
  5. DEXAMETHASONE [Concomitant]
     Indication: DISEASE PROGRESSION
     Route: 065
  6. TINZAPARIN [Concomitant]
     Indication: PRODUCT USED FOR UNKNOWN INDICATION
     Dosage: 4500 UNITS DAILY
     Route: 058

REACTIONS (1)
  - Malignant neoplasm progression [Unknown]
